FAERS Safety Report 23134914 (Version 1)
Quarter: 2023Q4

REPORT INFORMATION
  Report Type: Spontaneous
  Country: US (occurrence: None)
  Receive Date: 20231031
  Receipt Date: 20231031
  Transmission Date: 20240109
  Serious: Yes (unspecified)
  Sender: FDA-Public Use
  Company Number: None

PATIENT
  Age: 42 Year
  Sex: Female
  Weight: 65.25 kg

DRUGS (5)
  1. TAMOXIFEN CITRATE [Suspect]
     Active Substance: TAMOXIFEN CITRATE
     Indication: Breast cancer
     Dosage: OTHER QUANTITY : 1 TABLET(S);?FREQUENCY : AT BEDTIME;?
     Route: 048
  2. PROTONIX [Concomitant]
     Active Substance: PANTOPRAZOLE SODIUM
  3. CARAFATE [Concomitant]
     Active Substance: SUCRALFATE
  4. VITAMINS [Concomitant]
     Active Substance: VITAMINS
  5. DIPHENHYDRAMINE [Concomitant]
     Active Substance: DIPHENHYDRAMINE

REACTIONS (15)
  - Dysphagia [None]
  - Conversion disorder [None]
  - Neck pain [None]
  - Arthralgia [None]
  - Gastritis [None]
  - Speech disorder [None]
  - Duodenal ulcer [None]
  - Fatigue [None]
  - Headache [None]
  - Obstructive airways disorder [None]
  - Chest pain [None]
  - Pruritus [None]
  - Myalgia [None]
  - Lymphadenopathy [None]
  - Dizziness [None]

NARRATIVE: CASE EVENT DATE: 20231010
